FAERS Safety Report 7930065-1 (Version None)
Quarter: 2011Q4

REPORT INFORMATION
  Report Type: 
  Country: None (occurrence: None)
  Receive Date: 20111121
  Receipt Date: 20111109
  Transmission Date: 20120403
  Serious: Yes (Other)
  Sender: FDA-Public Use
  Company Number: FR-AMGEN-FRASP2011059336

PATIENT
  Age: 35 Year
  Sex: Female

DRUGS (2)
  1. LEVONORGESTREL + ETHINYL ESTRADIOL [Interacting]
     Indication: CONTRACEPTION
     Dosage: 1 DF, 1X/DAY
  2. ENBREL [Suspect]
     Indication: ANKYLOSING SPONDYLITIS
     Dosage: UNK

REACTIONS (6)
  - DRUG INEFFECTIVE [None]
  - INHIBITORY DRUG INTERACTION [None]
  - PREGNANCY ON ORAL CONTRACEPTIVE [None]
  - UNINTENDED PREGNANCY [None]
  - MATERNAL EXPOSURE TIMING UNSPECIFIED [None]
  - ABORTION INDUCED [None]
